FAERS Safety Report 4614499-9 (Version None)
Quarter: 2005Q2

REPORT INFORMATION
  Report Type: 
  Country: None (occurrence: None)
  Receive Date: 20050307
  Receipt Date: 20041227
  Transmission Date: 20051028
  Serious: No
  Sender: FDA-Public Use
  Company Number: USA041286979

PATIENT
  Sex: Female
  Weight: 46 kg

DRUGS (7)
  1. ALIMTA [Suspect]
     Indication: NON-SMALL CELL LUNG CANCER STAGE IV
     Dosage: 710 MG OTHER
     Dates: start: 20040101
  2. ATROVENT [Concomitant]
  3. ALBUTEROL [Concomitant]
  4. COMBIVENT [Concomitant]
  5. FOLIC ACID [Concomitant]
  6. VITAMIN B-12 [Concomitant]
  7. DECADRON [Concomitant]

REACTIONS (4)
  - ASTHENIA [None]
  - COUGH [None]
  - DYSPNOEA [None]
  - WHEEZING [None]
